FAERS Safety Report 18744200 (Version 4)
Quarter: 2021Q1

REPORT INFORMATION
  Report Type: Report from Study
  Country: None (occurrence: US)
  Receive Date: 20210114
  Receipt Date: 20210312
  Transmission Date: 20210419
  Serious: No
  Sender: FDA-Public Use
  Company Number: US-ABBVIE-21K-163-3720969-00

PATIENT
  Age: 25 Year
  Sex: Female
  Weight: 61.29 kg

DRUGS (3)
  1. ORILISSA [Suspect]
     Active Substance: ELAGOLIX SODIUM
     Indication: ENDOMETRIOSIS
     Route: 048
     Dates: start: 20201203, end: 20210101
  2. LUPRON [Suspect]
     Active Substance: LEUPROLIDE ACETATE
     Indication: ENDOMETRIOSIS
     Route: 065
  3. ORILISSA [Suspect]
     Active Substance: ELAGOLIX SODIUM
     Route: 048
     Dates: start: 20210102

REACTIONS (15)
  - Hot flush [Not Recovered/Not Resolved]
  - Abnormal weight gain [Unknown]
  - Migraine [Not Recovered/Not Resolved]
  - Insomnia [Not Recovered/Not Resolved]
  - Alopecia [Not Recovered/Not Resolved]
  - Depression [Not Recovered/Not Resolved]
  - Menorrhagia [Recovered/Resolved]
  - Paranoia [Not Recovered/Not Resolved]
  - Nausea [Recovered/Resolved]
  - Dysmenorrhoea [Recovered/Resolved]
  - Headache [Not Recovered/Not Resolved]
  - Amenorrhoea [Not Recovered/Not Resolved]
  - Ocular icterus [Recovered/Resolved]
  - Abdominal pain upper [Recovered/Resolved]
  - Emotional distress [Not Recovered/Not Resolved]

NARRATIVE: CASE EVENT DATE: 202012
